FAERS Safety Report 13487057 (Version 2)
Quarter: 2017Q2

REPORT INFORMATION
  Report Type: Spontaneous
  Country: JP (occurrence: JP)
  Receive Date: 20170426
  Receipt Date: 20170508
  Transmission Date: 20170830
  Serious: Yes (Other)
  Sender: FDA-Public Use
  Company Number: JP-MUNDIPHARMA DS AND PHARMACOVIGILANCE-GBR-2017-0044915

PATIENT
  Sex: Male

DRUGS (5)
  1. CYMBALTA [Concomitant]
     Active Substance: DULOXETINE HYDROCHLORIDE
     Indication: NEUROPATHY PERIPHERAL
     Dosage: 40 MG, DAILY
     Route: 065
     Dates: start: 201703, end: 201704
  2. TRYPTANOL                          /00002202/ [Concomitant]
     Active Substance: AMITRIPTYLINE
  3. CYMBALTA [Concomitant]
     Active Substance: DULOXETINE HYDROCHLORIDE
     Dosage: 20 MG, DAILY
     Route: 065
  4. HYPEN                              /00613801/ [Concomitant]
     Active Substance: ETODOLAC
  5. OXYCONTIN [Suspect]
     Active Substance: OXYCODONE HYDROCHLORIDE
     Indication: PRODUCT USED FOR UNKNOWN INDICATION
     Dosage: UNK
     Route: 065

REACTIONS (1)
  - Delirium [Recovered/Resolved]

NARRATIVE: CASE EVENT DATE: 201703
